FAERS Safety Report 5926761-8 (Version None)
Quarter: 2008Q4

REPORT INFORMATION
  Report Type: 
  Country: None (occurrence: None)
  Receive Date: 20081022
  Receipt Date: 20081015
  Transmission Date: 20090506
  Serious: Yes (Hospitalization)
  Sender: FDA-Public Use
  Company Number: FR-JNJFOC-20080401053

PATIENT
  Sex: Female
  Weight: 67.8 kg

DRUGS (11)
  1. RISPERDAL [Suspect]
     Indication: DEPRESSION
     Route: 048
  2. ANAFRANIL [Concomitant]
     Indication: DEPRESSION
     Route: 048
  3. LEXOMIL [Concomitant]
     Indication: ANXIETY
     Route: 048
  4. LEXOMIL [Concomitant]
     Route: 048
  5. SERESTA [Concomitant]
     Indication: INSOMNIA
     Route: 065
  6. TAREG [Concomitant]
     Indication: HYPERTENSION
     Route: 048
  7. LASIX [Concomitant]
     Indication: HYPERTENSION
     Route: 048
  8. HYPERIUM [Concomitant]
     Indication: HYPERTENSION
     Route: 048
  9. OXYGEN THERAPY [Concomitant]
     Indication: BRONCHOPNEUMOPATHY
     Route: 055
  10. SERETIDE [Concomitant]
  11. SERETIDE [Concomitant]

REACTIONS (4)
  - BRAIN NATRIURETIC PEPTIDE [None]
  - CARDIAC FAILURE [None]
  - DYSPNOEA [None]
  - RESPIRATORY FAILURE [None]
